FAERS Safety Report 9911743 (Version 1)
Quarter: 2014Q1

REPORT INFORMATION
  Report Type: Report from Study
  Country: DK (occurrence: DK)
  Receive Date: 20140219
  Receipt Date: 20140219
  Transmission Date: 20141002
  Serious: Yes (Hospitalization)
  Sender: FDA-Public Use
  Company Number: PHHY2014DK017779

PATIENT
  Age: 75 Year
  Sex: Male
  Weight: 65 kg

DRUGS (3)
  1. ACETYLSALICYLIC ACID [Suspect]
     Dosage: 100 MG, QD
  2. EFIENT [Suspect]
     Indication: ANGINA PECTORIS
     Dosage: 60 MG, SINGLE
     Route: 048
  3. EFIENT [Suspect]
     Dosage: 5 MG, QD
     Route: 048

REACTIONS (1)
  - Dysphagia [Recovered/Resolved]
